FAERS Safety Report 7463484-0 (Version None)
Quarter: 2011Q2

REPORT INFORMATION
  Report Type: 
  Country: None (occurrence: None)
  Receive Date: 20110506
  Receipt Date: 20110425
  Transmission Date: 20111010
  Serious: Yes (Other)
  Sender: FDA-Public Use
  Company Number: PHHY2010JP57896

PATIENT
  Sex: Male

DRUGS (5)
  1. AFINITOR [Suspect]
     Indication: METASTATIC RENAL CELL CARCINOMA
     Dosage: 10 MG DAILY
     Route: 048
     Dates: start: 20100810, end: 20100817
  2. CONIEL [Concomitant]
     Indication: PROPHYLAXIS
     Dosage: 2 MG, UNK
     Route: 048
  3. ACTOS [Concomitant]
     Indication: PROPHYLAXIS
     Dosage: 5 MG, UNK
     Route: 048
  4. LIPITOR [Concomitant]
     Indication: PROPHYLAXIS
     Dosage: 10 MG, UNK
     Route: 048
  5. THYRADIN [Concomitant]
     Indication: PROPHYLAXIS
     Dosage: 50 UG, UNK
     Route: 048

REACTIONS (6)
  - C-REACTIVE PROTEIN INCREASED [None]
  - ALANINE AMINOTRANSFERASE INCREASED [None]
  - METASTASES TO LUNG [None]
  - GAMMA-GLUTAMYLTRANSFERASE INCREASED [None]
  - ASPARTATE AMINOTRANSFERASE INCREASED [None]
  - INTERSTITIAL LUNG DISEASE [None]
